FAERS Safety Report 8981674 (Version 2)
Quarter: 2014Q2

REPORT INFORMATION
  Report Type: Spontaneous
  Country: US (occurrence: US)
  Receive Date: 20121223
  Receipt Date: 20130825
  Transmission Date: 20141212
  Serious: Yes (Other)
  Sender: FDA-Public Use
  Company Number: US-MERCK-1212USA008531

PATIENT
  Sex: Female

DRUGS (2)
  1. PEG-INTRON [Suspect]
     Indication: HEPATITIS C
     Dosage: UNK
     Dates: start: 20121019, end: 20121109
  2. RIBAVIRIN [Suspect]
     Indication: HEPATITIS C
     Dosage: UNK
     Dates: start: 20121019, end: 20121113

REACTIONS (21)
  - Syncope [Unknown]
  - Eye disorder [Unknown]
  - Mental impairment [Unknown]
  - Tremor [Unknown]
  - Gait disturbance [Unknown]
  - Gait disturbance [Unknown]
  - Anaemia [Unknown]
  - Tachycardia [Unknown]
  - Hypertension [Unknown]
  - Hypotension [Unknown]
  - Blood glucose increased [Unknown]
  - Vomiting [Unknown]
  - Chromaturia [Unknown]
  - Gastrointestinal disorder [Unknown]
  - Reproductive tract disorder [Unknown]
  - Chills [Unknown]
  - Headache [Unknown]
  - Injection site reaction [Unknown]
  - Fatigue [Unknown]
  - Dyspnoea [Unknown]
  - Leukopenia [Unknown]
